FAERS Safety Report 7422837-7 (Version None)
Quarter: 2011Q2

REPORT INFORMATION
  Report Type: 
  Country: None (occurrence: None)
  Receive Date: 20110419
  Receipt Date: 20091122
  Transmission Date: 20111010
  Serious: Yes (Other)
  Sender: FDA-Public Use
  Company Number: US-BAYER-200940401NA

PATIENT
  Age: 22 Year
  Sex: Male
  Weight: 94.785 kg

DRUGS (24)
  1. ALBUTEROL INHALER [Concomitant]
     Dosage: UNK
     Dates: start: 20051003
  2. ATROVENT [Concomitant]
     Dosage: 0.02 %, INHALER
     Route: 055
     Dates: start: 20011005
  3. HETASTARCH 6% IN 0.9% SODIUM CHLORIDE IN PLASTIC CONTAINER [Concomitant]
     Dosage: 6 %, UNK
     Route: 042
     Dates: start: 20011005
  4. VANCOMYCIN [Concomitant]
     Dosage: 2 G
     Route: 042
     Dates: start: 20011005
  5. MIDAZOLAM [Concomitant]
     Dosage: 2 MG TIMES 4
     Route: 042
     Dates: start: 20011005
  6. MORPHINE [Concomitant]
     Dosage: 10MG/ML 1 ML INJECTION
     Route: 042
     Dates: start: 20011005
  7. NAFCILLIN [Concomitant]
     Dosage: 2 G, BID
     Route: 042
     Dates: start: 20011005
  8. ALBUTEROL [Concomitant]
     Dosage: 0.083 %, UNK
     Route: 055
     Dates: start: 20011005
  9. FENTANYL [Concomitant]
     Dosage: 500 MG, UNK
     Route: 042
     Dates: start: 20011005
  10. PROTAMINE SULFATE [Concomitant]
     Dosage: 10 MG/ML, TID
     Route: 042
     Dates: start: 20011005
  11. FAMOTIDINE [Concomitant]
     Dosage: 40MG/4ML
     Route: 042
     Dates: start: 20011005
  12. MAGNESIUM SULFATE [Concomitant]
     Dosage: 16 MEQ, UNK
     Route: 042
     Dates: start: 20011005
  13. DOBUTAMINE HCL [Concomitant]
     Dosage: 500MG/D5W 250ML
     Route: 042
     Dates: start: 20011005
  14. GENTAMICIN [Concomitant]
     Dosage: 80 MG TIMES 6
     Route: 042
     Dates: start: 20011005
  15. TRASYLOL [Suspect]
     Indication: CORONARY ARTERY BYPASS
  16. VANCOMYCIN [Concomitant]
     Dosage: 500 MG X 4
     Route: 042
     Dates: start: 20011005
  17. TRASYLOL [Suspect]
     Indication: CARDIAC OPERATION
     Dosage: 10 MU/MI 200ML VIAL
     Route: 042
     Dates: start: 20011005
  18. PROPOFOL [Concomitant]
     Dosage: 10 MG, 4 TIMES
     Route: 042
     Dates: start: 20011005
  19. NOREPINEPHRINE BITARTRATE [Concomitant]
     Dosage: 8 MG, UNK
     Route: 042
     Dates: start: 20011005
  20. POTASSIUM CHLORIDE [Concomitant]
     Dosage: 10 MEQ, UNK
     Route: 042
     Dates: start: 20011005
  21. TRASYLOL [Suspect]
     Indication: AORTIC VALVE REPLACEMENT
  22. HYDROCODONE [Concomitant]
     Dosage: UNK
     Dates: start: 20011003
  23. AMPHOTERICIN B [Concomitant]
     Dosage: 100 MG, UNK
     Route: 042
     Dates: start: 20011005
  24. HEPARIN [Concomitant]
     Dosage: 6000 U, UNK
     Dates: start: 20011005

REACTIONS (12)
  - RENAL INJURY [None]
  - FEAR [None]
  - EMOTIONAL DISTRESS [None]
  - UNEVALUABLE EVENT [None]
  - RENAL IMPAIRMENT [None]
  - RENAL FAILURE [None]
  - ANXIETY [None]
  - PAIN [None]
  - INJURY [None]
  - ANHEDONIA [None]
  - MENTAL DISORDER [None]
  - STRESS [None]
